FAERS Safety Report 6112237-4 (Version None)
Quarter: 2009Q1

REPORT INFORMATION
  Report Type: 
  Country: None (occurrence: None)
  Receive Date: 20090310
  Receipt Date: 20090223
  Transmission Date: 20090719
  Serious: Yes (Hospitalization)
  Sender: FDA-Public Use
  Company Number: DSA_33270_2009

PATIENT
  Sex: Male

DRUGS (2)
  1. LORAZEPAM [Suspect]
     Dosage: (35 MG 1X, NOT THE PRESCRIBED AMONT ORAL)
     Route: 048
     Dates: start: 20090221, end: 20090221
  2. ETHANOL (ETHANOL - ETHANOL) [Suspect]
     Dosage: (2 1 1X, OVERDOSE AMOUNT UNKNOWN ORAL)
     Route: 048
     Dates: start: 20090221, end: 20090221

REACTIONS (5)
  - ALCOHOL USE [None]
  - DEPRESSED LEVEL OF CONSCIOUSNESS [None]
  - INTENTIONAL OVERDOSE [None]
  - SUICIDE ATTEMPT [None]
  - VOMITING [None]
